FAERS Safety Report 16211985 (Version 3)
Quarter: 2019Q2

REPORT INFORMATION
  Report Type: Spontaneous
  Country: IT (occurrence: IT)
  Receive Date: 20190418
  Receipt Date: 20190524
  Transmission Date: 20190711
  Serious: Yes (Life-Threatening, Hospitalization, Other)
  Sender: FDA-Public Use
  Company Number: IT-BIOGEN-2019BI00724290

PATIENT
  Age: 16 Year
  Sex: Female

DRUGS (3)
  1. RESILIENT [Concomitant]
     Active Substance: LITHIUM SULFATE
     Indication: PRODUCT USED FOR UNKNOWN INDICATION
     Route: 065
  2. PARACETAMOL [Suspect]
     Active Substance: ACETAMINOPHEN
     Indication: PRODUCT USED FOR UNKNOWN INDICATION
     Route: 065
  3. TYSABRI [Suspect]
     Active Substance: NATALIZUMAB
     Indication: RELAPSING-REMITTING MULTIPLE SCLEROSIS
     Route: 042
     Dates: start: 20181019, end: 20190406

REACTIONS (5)
  - Substance abuse [Recovered/Resolved]
  - Suicide attempt [Recovered/Resolved]
  - Off label use [Not Recovered/Not Resolved]
  - Intentional overdose [Recovered/Resolved]
  - Depression suicidal [Unknown]

NARRATIVE: CASE EVENT DATE: 20181019
